FAERS Safety Report 8274220-2 (Version None)
Quarter: 2012Q2

REPORT INFORMATION
  Report Type: 
  Country: None (occurrence: None)
  Receive Date: 20120411
  Receipt Date: 20120404
  Transmission Date: 20120825
  Serious: Yes (Other)
  Sender: FDA-Public Use
  Company Number: GB-TEVA-331518ISR

PATIENT
  Age: 56 Year
  Sex: Male
  Weight: 85 kg

DRUGS (1)
  1. TRIMETHOPRIM [Suspect]
     Dates: start: 20120326

REACTIONS (2)
  - ABDOMINAL PAIN [None]
  - HALLUCINATION [None]
